FAERS Safety Report 7274189-3 (Version None)
Quarter: 2011Q1

REPORT INFORMATION
  Report Type: 
  Country: None (occurrence: None)
  Receive Date: 20110204
  Receipt Date: 20110121
  Transmission Date: 20110831
  Serious: No
  Sender: FDA-Public Use
  Company Number: US-BIOGENIDEC-2011BI003500

PATIENT
  Age: 52 Year
  Sex: Female

DRUGS (4)
  1. SEROQUEL [Concomitant]
  2. TYSABRI [Suspect]
     Indication: MULTIPLE SCLEROSIS
     Route: 042
     Dates: start: 20071210
  3. SEROQUEL [Concomitant]
     Indication: AFFECTIVE DISORDER
  4. GEODON [Concomitant]
     Indication: AFFECTIVE DISORDER

REACTIONS (3)
  - WEIGHT INCREASED [None]
  - HEADACHE [None]
  - VOMITING [None]
